FAERS Safety Report 8135248-6 (Version None)
Quarter: 2012Q1

REPORT INFORMATION
  Report Type: 
  Country: None (occurrence: None)
  Receive Date: 20120214
  Receipt Date: 20120209
  Transmission Date: 20120608
  Serious: Yes (Other)
  Sender: FDA-Public Use
  Company Number: GB-ROCHE-1007090

PATIENT
  Sex: Female
  Weight: 81 kg

DRUGS (9)
  1. ATENOLOL [Concomitant]
  2. OMEPRAZOLE [Concomitant]
  3. MABTHERA [Suspect]
     Indication: RHEUMATOID ARTHRITIS
     Route: 042
     Dates: start: 20101102, end: 20101116
  4. FOLIC ACID [Concomitant]
  5. TRAMADOL HCL [Concomitant]
  6. METHOTREXATE [Concomitant]
  7. ATORVASTAN [Concomitant]
  8. RAMIPRIL [Concomitant]
  9. PROCHLORPERAZINE [Concomitant]

REACTIONS (2)
  - DEPRESSION [None]
  - CONDITION AGGRAVATED [None]
